FAERS Safety Report 10094267 (Version 1)
Quarter: 2014Q2

REPORT INFORMATION
  Report Type: Spontaneous
  Country: US (occurrence: None)
  Receive Date: 20140421
  Receipt Date: 20140421
  Transmission Date: 20141212
  Serious: Yes (Hospitalization, Disabling)
  Sender: FDA-Public Use
  Company Number: None

PATIENT
  Age: 59 Year
  Sex: Female
  Weight: 83.92 kg

DRUGS (1)
  1. BENICAR 20 MG DAIICHI SANKYO [Suspect]
     Indication: HYPERTENSION
     Route: 048

REACTIONS (2)
  - Vomiting [None]
  - Diarrhoea [None]
